FAERS Safety Report 24547000 (Version 2)
Quarter: 2025Q1

REPORT INFORMATION
  Report Type: Spontaneous
  Country: IR (occurrence: IR)
  Receive Date: 20241025
  Receipt Date: 20250106
  Transmission Date: 20250409
  Serious: Yes (Hospitalization)
  Sender: ENDO
  Company Number: IR-ENDO USA, INC.-2024-050226

PATIENT
  Age: 4 Year
  Sex: Male

DRUGS (1)
  1. BACLOFEN [Suspect]
     Active Substance: BACLOFEN
     Indication: Product used for unknown indication
     Route: 048

REACTIONS (5)
  - Status epilepticus [Recovered/Resolved]
  - Sinus bradycardia [Recovered/Resolved]
  - Accidental overdose [Recovered/Resolved]
  - Accidental exposure to product by child [Recovered/Resolved]
  - Mydriasis [Recovered/Resolved]
